FAERS Safety Report 5743824-0 (Version None)
Quarter: 2008Q2

REPORT INFORMATION
  Report Type: 
  Country: None (occurrence: None)
  Receive Date: 20080519
  Receipt Date: 20080519
  Transmission Date: 20081010
  Serious: Yes (Death)
  Sender: FDA-Public Use
  Company Number: None

PATIENT
  Age: 71 Year
  Sex: Male
  Weight: 82.5547 kg

DRUGS (7)
  1. TAMBOCOR [Suspect]
     Indication: ATRIAL FIBRILLATION
     Dosage: 1PO Q12 HOURS  EVERY 12 HOURS       PO
     Route: 048
     Dates: start: 20071031, end: 20071114
  2. COUMADIN [Concomitant]
  3. DIGOXIN [Concomitant]
  4. CLONAZEPAM [Concomitant]
  5. KLONOPIN [Concomitant]
  6. ASPIRIN [Concomitant]
  7. IBUROFEN [Concomitant]

REACTIONS (5)
  - ATRIAL FIBRILLATION [None]
  - CONTRAINDICATION TO MEDICAL TREATMENT [None]
  - ISCHAEMIC CARDIOMYOPATHY [None]
  - SUDDEN DEATH [None]
  - VENTRICULAR ARRHYTHMIA [None]
